FAERS Safety Report 21654798 (Version 2)
Quarter: 2025Q2

REPORT INFORMATION
  Report Type: Spontaneous
  Country: ES (occurrence: ES)
  Receive Date: 20221129
  Receipt Date: 20250616
  Transmission Date: 20250716
  Serious: Yes (Other)
  Sender: AUROBINDO
  Company Number: ES-UCBSA-2022064393

PATIENT
  Age: 61 Year
  Sex: Female

DRUGS (6)
  1. LEVETIRACETAM [Suspect]
     Active Substance: LEVETIRACETAM
     Indication: Generalised tonic-clonic seizure
     Dosage: 12000 MILLIGRAM, ONCE A DAY (2000 MG PER 4 HOURS)
     Route: 065
  2. LEVETIRACETAM [Suspect]
     Active Substance: LEVETIRACETAM
     Dosage: 1000 MILLIGRAM, ONCE A DAY
     Route: 042
  3. PHENYTOIN [Suspect]
     Active Substance: PHENYTOIN
     Indication: Seizure
     Dosage: 2100 MILLIGRAM, ONCE A DAY (350 MILLIGRAM PER 4 HOURS)
     Route: 065
  4. PHENYTOIN [Suspect]
     Active Substance: PHENYTOIN
     Dosage: 300 MILLIGRAM, ONCE A DAY (100 MILLIGRAM PER 8 HOURS)
     Route: 065
  5. VIMPAT [Suspect]
     Active Substance: LACOSAMIDE
     Indication: Seizure
     Dosage: 400 MILLIGRAM, ONCE A DAY (200 MILLIGRAM PER 12 HOUR)
     Route: 065
  6. VIMPAT [Suspect]
     Active Substance: LACOSAMIDE
     Dosage: 200 MILLIGRAM, ONCE A DAY
     Route: 065

REACTIONS (5)
  - Status epilepticus [Unknown]
  - Focal dyscognitive seizures [Unknown]
  - Multiple-drug resistance [Unknown]
  - Off label use [Unknown]
  - Overdose [Unknown]
